FAERS Safety Report 5627358-X (Version None)
Quarter: 2008Q1

REPORT INFORMATION
  Report Type: 
  Country: None (occurrence: None)
  Receive Date: 20080215
  Receipt Date: 20080206
  Transmission Date: 20080703
  Serious: Yes (Hospitalization)
  Sender: FDA-Public Use
  Company Number: FR-JNJFOC-20080203154

PATIENT
  Sex: Female

DRUGS (1)
  1. IXPRIM [Suspect]
     Indication: DRUG USE FOR UNKNOWN INDICATION
     Dosage: 37.5 + 325 MG
     Route: 048

REACTIONS (4)
  - BODY TEMPERATURE DECREASED [None]
  - MALAISE [None]
  - PALPITATIONS [None]
  - SHOCK [None]
